FAERS Safety Report 14195150 (Version 1)
Quarter: 2017Q4

REPORT INFORMATION
  Report Type: Spontaneous
  Country: US (occurrence: None)
  Receive Date: 20171116
  Receipt Date: 20171116
  Transmission Date: 20180321
  Serious: Yes (Hospitalization, Other)
  Sender: FDA-Public Use
  Company Number: None

PATIENT
  Age: 69 Year
  Sex: Female
  Weight: 58.97 kg

DRUGS (10)
  1. LEVOTHYROXINE. [Concomitant]
     Active Substance: LEVOTHYROXINE
  2. GINKO BILOBA [Concomitant]
     Active Substance: GINKGO
  3. ZOLOFT [Concomitant]
     Active Substance: SERTRALINE HYDROCHLORIDE
  4. ZYRTEC [Concomitant]
     Active Substance: CETIRIZINE HYDROCHLORIDE
  5. MULTI VITAMIN [Concomitant]
     Active Substance: VITAMINS
  6. VITAMIN D3 [Concomitant]
     Active Substance: CHOLECALCIFEROL
  7. VITAMIN B12 [Concomitant]
     Active Substance: CYANOCOBALAMIN
  8. MELATONIN [Concomitant]
     Active Substance: MELATONIN
  9. MELOXICAM. [Suspect]
     Active Substance: MELOXICAM
     Indication: FIBROMYALGIA
     Route: 048
     Dates: start: 20170927, end: 20171027
  10. PROLIA [Concomitant]
     Active Substance: DENOSUMAB

REACTIONS (12)
  - Dizziness [None]
  - Somnolence [None]
  - Fatigue [None]
  - Acute kidney injury [None]
  - Asthenia [None]
  - Back pain [None]
  - Nausea [None]
  - Dehydration [None]
  - Contusion [None]
  - Alopecia [None]
  - Diarrhoea [None]
  - Gastritis [None]
